FAERS Safety Report 5756512-1 (Version None)
Quarter: 2008Q2

REPORT INFORMATION
  Report Type: 
  Country: None (occurrence: None)
  Receive Date: 20080603
  Receipt Date: 20080528
  Transmission Date: 20081010
  Serious: Yes (Other)
  Sender: FDA-Public Use
  Company Number: NL-JNJFOC-20080506065

PATIENT
  Sex: Male

DRUGS (1)
  1. CONCERTA [Suspect]
     Indication: DRUG USE FOR UNKNOWN INDICATION

REACTIONS (6)
  - ACCIDENTAL EXPOSURE [None]
  - HYPERHIDROSIS [None]
  - INCOHERENT [None]
  - MYDRIASIS [None]
  - PANIC ATTACK [None]
  - TACHYCARDIA [None]
